FAERS Safety Report 9799392 (Version 1)
Quarter: 2014Q1

REPORT INFORMATION
  Report Type: Spontaneous
  Country: US (occurrence: None)
  Receive Date: 20140103
  Receipt Date: 20140103
  Transmission Date: 20141002
  Serious: Yes (Death)
  Sender: FDA-Public Use
  Company Number: None

PATIENT
  Age: 51 Year
  Sex: Male

DRUGS (16)
  1. ACTEMRA 400MG/20ML GENENTECH [Suspect]
     Indication: RHEUMATOID ARTHRITIS
     Dosage: 400MG/20ML SDV ?800MG EVERY 4 WK ?IV
     Route: 042
     Dates: start: 20121218, end: 20131227
  2. VIAGRA [Concomitant]
  3. ACAMPROSATE CAL DR [Concomitant]
  4. CARVEDILOL [Concomitant]
  5. ROZEREM [Concomitant]
  6. CYMBALTA [Concomitant]
  7. LISINOPRIL [Concomitant]
  8. OMEPRAZOLE [Concomitant]
  9. ZETIA [Concomitant]
  10. FOLIC ACID [Concomitant]
  11. SPIRONOLACTONE [Concomitant]
  12. PRAVASTATIN [Concomitant]
  13. LEVEMIR FLEXPEN [Concomitant]
  14. PREDISONE [Concomitant]
  15. SOIRONOLACT [Concomitant]
  16. ADVICOR [Concomitant]

REACTIONS (1)
  - Pancreatitis [None]
